FAERS Safety Report 7699603-0 (Version None)
Quarter: 2011Q3

REPORT INFORMATION
  Report Type: 
  Country: None (occurrence: None)
  Receive Date: 20110822
  Receipt Date: 20110811
  Transmission Date: 20111222
  Serious: Yes (Hospitalization)
  Sender: FDA-Public Use
  Company Number: GB-BIOGENIDEC-2011BI030704

PATIENT
  Age: 42 Year
  Sex: Female

DRUGS (1)
  1. AVONEX [Suspect]
     Indication: MULTIPLE SCLEROSIS
     Route: 030
     Dates: start: 20100101

REACTIONS (7)
  - VISION BLURRED [None]
  - EXPIRED DRUG ADMINISTERED [None]
  - MULTIPLE SCLEROSIS RELAPSE [None]
  - VERTIGO [None]
  - GENERAL SYMPTOM [None]
  - VIITH NERVE PARALYSIS [None]
  - GAIT DISTURBANCE [None]
